FAERS Safety Report 7674575-3 (Version None)
Quarter: 2011Q3

REPORT INFORMATION
  Report Type: 
  Country: None (occurrence: None)
  Receive Date: 20110810
  Receipt Date: 20110802
  Transmission Date: 20111222
  Serious: Yes (Hospitalization)
  Sender: FDA-Public Use
  Company Number: PHHY2011US58958

PATIENT
  Sex: Female

DRUGS (2)
  1. EXTAVIA [Suspect]
     Indication: MULTIPLE SCLEROSIS
     Dosage: 0.187 MG, QOD
     Route: 058
     Dates: start: 20110630
  2. PREDNISONE [Concomitant]
     Dosage: UNK UKN, UNK
     Route: 042

REACTIONS (9)
  - VOMITING [None]
  - DEHYDRATION [None]
  - PYREXIA [None]
  - SALIVARY HYPERSECRETION [None]
  - DRY SKIN [None]
  - DIARRHOEA [None]
  - SKIN EXFOLIATION [None]
  - BURNING SENSATION [None]
  - CHROMATURIA [None]
